FAERS Safety Report 4878539-4 (Version None)
Quarter: 2006Q1

REPORT INFORMATION
  Report Type: 
  Country: None (occurrence: None)
  Receive Date: 20060110
  Receipt Date: 20051230
  Transmission Date: 20060701
  Serious: Yes (Other)
  Sender: FDA-Public Use
  Company Number: 2005-134712-NL

PATIENT

DRUGS (1)
  1. ZEMURON [Suspect]
     Indication: INTUBATION
     Dosage: DF INTRAVENOUS NOS
     Route: 042
     Dates: start: 20040101, end: 20040101

REACTIONS (2)
  - APNOEA [None]
  - NEUROMUSCULAR BLOCK PROLONGED [None]
